FAERS Safety Report 17861378 (Version 1)
Quarter: 2020Q2

REPORT INFORMATION
  Report Type: Spontaneous
  Country: CN (occurrence: CN)
  Receive Date: 20200604
  Receipt Date: 20200604
  Transmission Date: 20200714
  Serious: Yes (Hospitalization)
  Sender: FDA-Public Use
  Company Number: CN-ABBVIE-20K-035-3431329-00

PATIENT
  Age: 53 Year
  Sex: Female

DRUGS (1)
  1. ALUVIA [Suspect]
     Active Substance: LOPINAVIR\RITONAVIR
     Indication: ACQUIRED IMMUNODEFICIENCY SYNDROME
     Route: 048
     Dates: start: 20200514, end: 20200525

REACTIONS (4)
  - Drug eruption [Recovered/Resolved]
  - Pruritus [Recovered/Resolved]
  - Exfoliative rash [Recovering/Resolving]
  - Rash erythematous [Unknown]

NARRATIVE: CASE EVENT DATE: 20200525
